FAERS Safety Report 19944376 (Version 2)
Quarter: 2021Q4

REPORT INFORMATION
  Report Type: Spontaneous
  Country: US (occurrence: US)
  Receive Date: 20211012
  Receipt Date: 20211103
  Transmission Date: 20220303
  Serious: No
  Sender: FDA-Public Use
  Company Number: US-BAYER-2021A225072

PATIENT
  Age: 56 Year
  Sex: Female

DRUGS (2)
  1. ALEVE [Suspect]
     Active Substance: NAPROXEN SODIUM
     Indication: Ligament sprain
     Dosage: 1 DF, Q8HR
     Route: 048
     Dates: start: 202109, end: 202109
  2. AMLODIPINE [Concomitant]
     Active Substance: AMLODIPINE BESYLATE
     Indication: Blood pressure abnormal

REACTIONS (8)
  - Peripheral swelling [Recovering/Resolving]
  - Erythema [None]
  - Pain [None]
  - Drug ineffective [None]
  - Oedema [None]
  - Gait disturbance [None]
  - Limb discomfort [None]
  - Pain in extremity [None]

NARRATIVE: CASE EVENT DATE: 20210901
